FAERS Safety Report 21015583 (Version 1)
Quarter: 2022Q2

REPORT INFORMATION
  Report Type: Spontaneous
  Country: US (occurrence: US)
  Receive Date: 20220628
  Receipt Date: 20220628
  Transmission Date: 20220720
  Serious: No
  Sender: FDA-Public Use
  Company Number: US-JNJFOC-20220650320

PATIENT
  Age: 79 Year
  Sex: Male

DRUGS (1)
  1. ZYTIGA [Suspect]
     Active Substance: ABIRATERONE ACETATE
     Indication: Product used for unknown indication
     Dosage: 08/JUL/2019 TO 22/JUN/2022
     Route: 048
     Dates: start: 20190708

REACTIONS (2)
  - Gastric disorder [Recovered/Resolved]
  - Pain [Recovered/Resolved]
